FAERS Safety Report 14700194 (Version 3)
Quarter: 2018Q2

REPORT INFORMATION
  Report Type: Spontaneous
  Country: CZ (occurrence: CZ)
  Receive Date: 20180330
  Receipt Date: 20180419
  Transmission Date: 20180711
  Serious: Yes (Other)
  Sender: FDA-Public Use
  Company Number: CZ-JNJFOC-20180230726

PATIENT
  Age: 52 Year
  Sex: Male

DRUGS (26)
  1. DEXAMETHASONE. [Suspect]
     Active Substance: DEXAMETHASONE
     Indication: PLASMA CELL MYELOMA
     Dosage: 9 CYCLES
     Route: 065
     Dates: start: 201402
  2. DEXAMETHASONE. [Suspect]
     Active Substance: DEXAMETHASONE
     Indication: PLASMA CELL MYELOMA
     Route: 065
     Dates: start: 201412
  3. BORTEZOMIB [Suspect]
     Active Substance: BORTEZOMIB
     Indication: PLASMA CELL MYELOMA
     Dosage: 4 CYCLES
     Route: 065
     Dates: start: 20100101
  4. CARFILZOMIB [Suspect]
     Active Substance: CARFILZOMIB
     Indication: PLASMA CELL MYELOMA
     Dosage: 3 CYCLES
     Route: 065
  5. MELPHALAN. [Suspect]
     Active Substance: MELPHALAN
     Indication: PLASMA CELL MYELOMA
     Dosage: 8 CYCLES
  6. REVLIMID [Suspect]
     Active Substance: LENALIDOMIDE
     Indication: PLASMA CELL MYELOMA
     Dosage: 5 CYCLES
     Route: 065
     Dates: start: 20111201, end: 20131201
  7. REVLIMID [Suspect]
     Active Substance: LENALIDOMIDE
     Indication: PLASMA CELL MYELOMA
     Dosage: 8 CYCLES FOLLOWED BY MAINTAINING 8 CYCLES
     Route: 065
  8. DEXAMETHASONE. [Suspect]
     Active Substance: DEXAMETHASONE
     Indication: PLASMA CELL MYELOMA
     Dosage: 2 CYCLES
     Route: 065
  9. DARATUMUMAB [Suspect]
     Active Substance: DARATUMUMAB
     Indication: PLASMA CELL MYELOMA
     Route: 042
  10. DARATUMUMAB [Suspect]
     Active Substance: DARATUMUMAB
     Indication: PLASMA CELL MYELOMA
     Dosage: 5 CYCLES
     Route: 042
     Dates: start: 201605
  11. CYCLOPHOSPHAMIDE. [Suspect]
     Active Substance: CYCLOPHOSPHAMIDE
     Indication: PLASMA CELL MYELOMA
     Route: 065
     Dates: start: 201402
  12. CYCLOPHOSPHAMIDE. [Suspect]
     Active Substance: CYCLOPHOSPHAMIDE
     Indication: PLASMA CELL MYELOMA
     Dosage: 9 CYCLES
     Route: 065
     Dates: start: 201402
  13. DEXAMETHASONE. [Suspect]
     Active Substance: DEXAMETHASONE
     Indication: PLASMA CELL MYELOMA
     Dosage: 4 CYCLES
     Route: 065
     Dates: start: 20100101
  14. DEXAMETHASONE. [Suspect]
     Active Substance: DEXAMETHASONE
     Indication: PLASMA CELL MYELOMA
     Dosage: 8 CYCLES
     Route: 065
     Dates: end: 20141201
  15. ACYCLOVIR. [Concomitant]
     Active Substance: ACYCLOVIR
     Indication: PRODUCT USED FOR UNKNOWN INDICATION
     Route: 065
  16. BORTEZOMIB [Suspect]
     Active Substance: BORTEZOMIB
     Indication: PLASMA CELL MYELOMA
     Dosage: 9 CYCLES
     Route: 065
     Dates: start: 20140101
  17. DEXAMETHASONE. [Suspect]
     Active Substance: DEXAMETHASONE
     Indication: PLASMA CELL MYELOMA
     Dosage: 8 CYCLES FOLLOWED BY MAINTAINING 8 CYCLES
     Route: 065
     Dates: start: 20111201, end: 20131201
  18. CARFILZOMIB [Suspect]
     Active Substance: CARFILZOMIB
     Indication: PLASMA CELL MYELOMA
     Dosage: 8 CYCLES FOLLOWED BY MAINTAINING 8 CYCLES
     Route: 065
     Dates: start: 20111201, end: 20131201
  19. POMALIDOMIDE [Suspect]
     Active Substance: POMALIDOMIDE
     Indication: PLASMA CELL MYELOMA
     Route: 065
     Dates: end: 20141201
  20. POMALIDOMIDE [Suspect]
     Active Substance: POMALIDOMIDE
     Indication: PLASMA CELL MYELOMA
     Dosage: 8 CYCLES
     Route: 065
     Dates: start: 20141201
  21. DEXAMETHASONE. [Suspect]
     Active Substance: DEXAMETHASONE
     Indication: PLASMA CELL MYELOMA
     Dosage: 3 CYCLES
     Route: 065
  22. BORTEZOMIB [Suspect]
     Active Substance: BORTEZOMIB
     Indication: PLASMA CELL MYELOMA
     Dosage: 9 CYCLES
     Route: 065
     Dates: start: 20140201
  23. CYCLOPHOSPHAMIDE. [Suspect]
     Active Substance: CYCLOPHOSPHAMIDE
     Indication: PLASMA CELL MYELOMA
     Dosage: 9 CYCLES
     Route: 065
     Dates: start: 201402
  24. CYCLOPHOSPHAMIDE. [Suspect]
     Active Substance: CYCLOPHOSPHAMIDE
     Indication: PLASMA CELL MYELOMA
     Dosage: 2 CYCLES
     Route: 065
  25. DEXAMETHASONE. [Suspect]
     Active Substance: DEXAMETHASONE
     Indication: PLASMA CELL MYELOMA
     Dosage: 9 CYCLES
     Route: 065
     Dates: start: 20140101
  26. MELPHALAN. [Suspect]
     Active Substance: MELPHALAN
     Indication: PLASMA CELL MYELOMA

REACTIONS (8)
  - Venous thrombosis [Unknown]
  - Pneumocystis jirovecii pneumonia [Unknown]
  - Drug ineffective [Unknown]
  - Deep vein thrombosis [Unknown]
  - Drug effect incomplete [Unknown]
  - Polyneuropathy [Unknown]
  - Herpes zoster [Unknown]
  - Disease progression [Unknown]

NARRATIVE: CASE EVENT DATE: 20131201
